FAERS Safety Report 24253206 (Version 1)
Quarter: 2024Q3

REPORT INFORMATION
  Report Type: Spontaneous
  Country: US (occurrence: US)
  Receive Date: 20240827
  Receipt Date: 20240827
  Transmission Date: 20241017
  Serious: Yes (Other)
  Sender: AUROBINDO
  Company Number: US-AUROBINDO-AUR-APL-2024-041209

PATIENT
  Sex: Female

DRUGS (1)
  1. NEOSTIGMINE [Suspect]
     Active Substance: NEOSTIGMINE
     Indication: Dropped head syndrome
     Dosage: UNK
     Route: 065

REACTIONS (4)
  - Cholinergic syndrome [Recovered/Resolved]
  - Secretion discharge [Recovered/Resolved]
  - Vision blurred [Recovered/Resolved]
  - Lacrimation increased [Recovered/Resolved]
